FAERS Safety Report 4332799-7 (Version None)
Quarter: 2004Q1

REPORT INFORMATION
  Report Type: 
  Country: None (occurrence: None)
  Receive Date: 20040330
  Receipt Date: 20040315
  Transmission Date: 20041129
  Serious: No
  Sender: FDA-Public Use
  Company Number: A01200401281

PATIENT
  Age: 56 Year
  Sex: Female

DRUGS (2)
  1. (FONDAPARINUX) - SOLUTION - 2.5 MG [Suspect]
     Indication: HIP ARTHROPLASTY
     Dosage: 2.5 MG OD
     Route: 058
     Dates: start: 20040311, end: 20040312
  2. (FONDAPARINUX) - SOLUTION - 2.5 MG [Suspect]
     Indication: THROMBOSIS PROPHYLAXIS
     Dosage: 2.5 MG OD
     Route: 058
     Dates: start: 20040311, end: 20040312

REACTIONS (3)
  - FAT EMBOLISM [None]
  - POST PROCEDURAL COMPLICATION [None]
  - SENSORIMOTOR DISORDER [None]
